FAERS Safety Report 5690232-7 (Version None)
Quarter: 2008Q2

REPORT INFORMATION
  Report Type: 
  Country: None (occurrence: None)
  Receive Date: 20080401
  Receipt Date: 20080324
  Transmission Date: 20081010
  Serious: Yes (Death, Hospitalization)
  Sender: FDA-Public Use
  Company Number: JP-ROCHE-547643

PATIENT
  Age: 55 Year
  Sex: Male
  Weight: 60 kg

DRUGS (14)
  1. XELODA [Suspect]
     Indication: RECTAL CANCER METASTATIC
     Dosage: DRUG: XELODA 300. 2 WEEKS ADMINISTRATION FOLLOWED BY 1 WEEK REST, 1800-3600 MG.
     Route: 048
     Dates: start: 20071226
  2. ADRENALINE [Suspect]
     Indication: DRUG USE FOR UNKNOWN INDICATION
     Dosage: DRUG NAME: ADRENAL HORMONE PREPARATIONS.
     Route: 065
  3. STOMACHICS [Suspect]
     Indication: DRUG USE FOR UNKNOWN INDICATION
     Dosage: DRUG NAME: STOMACHICS AND DIGESTIVES.
     Route: 065
  4. PREDONINE [Concomitant]
     Route: 048
     Dates: start: 20070821, end: 20071010
  5. PREDONINE [Concomitant]
     Route: 048
     Dates: start: 20071011, end: 20071128
  6. PREDONINE [Concomitant]
     Route: 048
     Dates: start: 20071129, end: 20080116
  7. PREDONINE [Concomitant]
     Route: 048
     Dates: start: 20080117, end: 20080203
  8. GLYCERIN [Concomitant]
     Dosage: DRUG: GLYCEREB (CONCENTRATED GLYCERIN-FRUCTOSE)
     Route: 042
     Dates: start: 20080125, end: 20080125
  9. GLYCERIN [Concomitant]
     Route: 042
     Dates: start: 20080126, end: 20080130
  10. GLYCERIN [Concomitant]
     Route: 042
     Dates: start: 20080131, end: 20080229
  11. GASTER D [Concomitant]
     Route: 048
     Dates: start: 20070818, end: 20080203
  12. MAGLAX [Concomitant]
     Dosage: START DATE REPORTED AS BEFORE 25 JAN 2008.
     Route: 048
     Dates: end: 20080203
  13. LOXONIN [Concomitant]
     Dosage: FORM: ORAL FORMULATION (NOS)
     Route: 048
     Dates: end: 20080203
  14. 1 CONCOMITANT DRUG [Concomitant]
     Dosage: DRUG: PYRIDOXAL
     Route: 048
     Dates: end: 20080203

REACTIONS (12)
  - ANOREXIA [None]
  - BLOOD PRESSURE DECREASED [None]
  - BONE MARROW FAILURE [None]
  - DISSEMINATED INTRAVASCULAR COAGULATION [None]
  - GAIT DISTURBANCE [None]
  - INFECTION [None]
  - METASTASES TO CENTRAL NERVOUS SYSTEM [None]
  - METASTASES TO LUNG [None]
  - PLATELET COUNT DECREASED [None]
  - SEPSIS [None]
  - SHOCK [None]
  - WHITE BLOOD CELL COUNT DECREASED [None]
